FAERS Safety Report 7557896-4 (Version None)
Quarter: 2011Q2

REPORT INFORMATION
  Report Type: 
  Country: None (occurrence: None)
  Receive Date: 20110620
  Receipt Date: 20110620
  Transmission Date: 20111010
  Serious: Yes (Hospitalization)
  Sender: FDA-Public Use
  Company Number: A0899211A

PATIENT
  Age: 59 Year
  Sex: Female

DRUGS (1)
  1. AVANDIA [Suspect]
     Indication: DIABETES MELLITUS
     Dosage: 2MG TWICE PER DAY
     Route: 048
     Dates: start: 19980101, end: 20020101

REACTIONS (5)
  - THROMBOSIS [None]
  - ARTERIOSCLEROSIS [None]
  - MYOCARDIAL INFARCTION [None]
  - CARDIAC OPERATION [None]
  - STENT PLACEMENT [None]
